FAERS Safety Report 18920978 (Version 1)
Quarter: 2021Q1

REPORT INFORMATION
  Report Type: Report from Study
  Country: GB (occurrence: GB)
  Receive Date: 20210222
  Receipt Date: 20210222
  Transmission Date: 20210420
  Serious: Yes (Other)
  Sender: FDA-Public Use
  Company Number: GB-REGENERON PHARMACEUTICALS, INC.-2018-36135

PATIENT

DRUGS (10)
  1. THIAMINE. [Concomitant]
     Active Substance: THIAMINE
     Indication: ALCOHOLISM
     Dosage: 50 MG, BID
     Route: 048
     Dates: start: 201701
  2. ASPIRIN                            /00002701/ [Concomitant]
     Active Substance: ASPIRIN
     Indication: RAYNAUD^S PHENOMENON
     Dosage: 75 MG, QD
     Route: 048
     Dates: start: 20180323
  3. IBUGEL [Concomitant]
     Active Substance: IBUPROFEN
     Indication: ARTHRALGIA
     Dosage: 10 %, TID
     Route: 061
     Dates: start: 20180503
  4. OMEPRAZOLE. [Concomitant]
     Active Substance: OMEPRAZOLE
     Indication: GASTROOESOPHAGEAL REFLUX DISEASE
     Dosage: 20 MG, QD
     Route: 048
     Dates: start: 20180503
  5. NIFEDIPINE. [Concomitant]
     Active Substance: NIFEDIPINE
     Indication: RAYNAUD^S PHENOMENON
     Dosage: 5 MG, TID
     Dates: start: 20180316
  6. IBUPROFEN. [Concomitant]
     Active Substance: IBUPROFEN
     Indication: ARTHRALGIA
     Dosage: 400 MG, TID
     Route: 048
     Dates: start: 20180503
  7. CEMIPLIMAB [Suspect]
     Active Substance: CEMIPLIMAB
     Indication: SQUAMOUS CELL CARCINOMA OF HEAD AND NECK
     Dosage: 3 MG/KG, Q2W
     Route: 042
     Dates: start: 20180125, end: 20180712
  8. VITAMIN B12 [Concomitant]
     Active Substance: CYANOCOBALAMIN
     Indication: ALCOHOLISM
     Dosage: 1 TABLET, QD
     Route: 048
     Dates: start: 201701
  9. FUSIDIC ACID [Concomitant]
     Active Substance: FUSIDIC ACID
     Indication: LOCALISED INFECTION
     Dosage: 1 APPLICATION, TID
     Route: 061
     Dates: start: 20180327
  10. COCODAMOL [Concomitant]
     Active Substance: ACETAMINOPHEN\CODEINE PHOSPHATE
     Indication: ARTHRALGIA
     Dosage: 2 TABLETS, QID
     Route: 048
     Dates: start: 20180503

REACTIONS (1)
  - Uveitis [Recovered/Resolved with Sequelae]

NARRATIVE: CASE EVENT DATE: 20180816
